FAERS Safety Report 5527014-2 (Version None)
Quarter: 2007Q4

REPORT INFORMATION
  Report Type: 
  Country: None (occurrence: None)
  Receive Date: 20071127
  Receipt Date: 20071121
  Transmission Date: 20080405
  Serious: Yes (Hospitalization, Other)
  Sender: FDA-Public Use
  Company Number: GB-PFIZER INC-2007098113

PATIENT
  Age: 25 Year
  Sex: Female

DRUGS (11)
  1. FRAGMIN [Suspect]
     Route: 058
  2. AMOXICILLIN [Concomitant]
     Dosage: DAILY DOSE:1.2GRAM
     Route: 042
  3. CLARITHROMYCIN [Concomitant]
     Route: 048
     Dates: start: 20071030, end: 20071031
  4. CLAVULANIC ACID [Concomitant]
     Dosage: DAILY DOSE:1.2GRAM
     Route: 042
  5. DIHYDROCODEINE [Concomitant]
     Route: 048
  6. FLUCLOXACILLIN [Concomitant]
     Dates: start: 20071030, end: 20071031
  7. GENTAMICIN [Concomitant]
     Dosage: DAILY DOSE:280MG-FREQ:DAILY
     Dates: start: 20071030, end: 20071109
  8. IBUPROFEN [Concomitant]
     Route: 048
  9. NICOTINE [Concomitant]
     Route: 062
  10. PHOSPHATE-SANDOZ [Concomitant]
     Route: 048
     Dates: start: 20071031, end: 20071104
  11. ALBUTEROL [Concomitant]
     Route: 055

REACTIONS (1)
  - HYPERKALAEMIA [None]
